FAERS Safety Report 7141772-5 (Version None)
Quarter: 2010Q4

REPORT INFORMATION
  Report Type: 
  Country: None (occurrence: None)
  Receive Date: 20101112
  Receipt Date: 20100825
  Transmission Date: 20110411
  Serious: No
  Sender: FDA-Public Use
  Company Number: 1000015935

PATIENT
  Age: 57 Year
  Sex: Female

DRUGS (10)
  1. SAVELLA [Suspect]
     Indication: FIBROMYALGIA
     Dosage: 12.5 MG (12.5 MG,1 IN 1 D),ORAL ; 25 MG (12.5 MG,2 IN 1 D),ORAL
     Route: 048
     Dates: start: 20100818, end: 20100818
  2. SAVELLA [Suspect]
     Indication: FIBROMYALGIA
     Dosage: 12.5 MG (12.5 MG,1 IN 1 D),ORAL ; 25 MG (12.5 MG,2 IN 1 D),ORAL
     Route: 048
     Dates: start: 20100819, end: 20100820
  3. SAVELLA [Suspect]
     Indication: FIBROMYALGIA
     Dosage: 50 MG (25 MG,2 IN 1 D),ORAL ; 25 MG (12.5 MG,2 IN 1 D),ORAL
     Route: 048
     Dates: start: 20100821, end: 20100822
  4. SAVELLA [Suspect]
     Indication: FIBROMYALGIA
     Dosage: 50 MG (25 MG,2 IN 1 D),ORAL ; 25 MG (12.5 MG,2 IN 1 D),ORAL
     Route: 048
     Dates: start: 20100823
  5. ARIMIDEX [Concomitant]
  6. BYSTOLIC [Concomitant]
  7. HYDROXYZINE [Concomitant]
  8. TEMAZEPAM [Concomitant]
  9. OXYCODONE (TABLETS) [Concomitant]
  10. MOBIC [Concomitant]

REACTIONS (3)
  - ASTHENIA [None]
  - DYSGEUSIA [None]
  - FATIGUE [None]
